FAERS Safety Report 8837453 (Version 1)
Quarter: 2012Q4

REPORT INFORMATION
  Report Type: 
  Country: US (occurrence: US)
  Receive Date: 20121012
  Receipt Date: 20121012
  Transmission Date: 20130627
  Serious: Yes (Other)
  Sender: FDA-Public Use
  Company Number: US-PFIZER INC-2012250205

PATIENT
  Sex: Female

DRUGS (3)
  1. GLIPIZIDE [Suspect]
  2. METFORMIN [Suspect]
  3. VICTOZA [Suspect]
     Dosage: 0.6 mg, UNK

REACTIONS (2)
  - Blood glucose decreased [Unknown]
  - Tremor [Unknown]
